FAERS Safety Report 23219444 (Version 4)
Quarter: 2025Q3

REPORT INFORMATION
  Report Type: Spontaneous
  Country: JP (occurrence: JP)
  Receive Date: 20231122
  Receipt Date: 20250709
  Transmission Date: 20251021
  Serious: Yes (Hospitalization)
  Sender: EISAI
  Company Number: JP-Eisai-202309940_LEN_P_1

PATIENT
  Age: 62 Year
  Sex: Male

DRUGS (5)
  1. LENVIMA [Suspect]
     Active Substance: LENVATINIB
     Indication: Papillary thyroid cancer
     Dates: start: 20220419, end: 20220514
  2. LENVIMA [Suspect]
     Active Substance: LENVATINIB
     Dates: start: 20220523, end: 20220525
  3. LENVIMA [Suspect]
     Active Substance: LENVATINIB
     Dates: start: 20220526, end: 20230530
  4. LENVIMA [Suspect]
     Active Substance: LENVATINIB
     Dates: start: 20230607, end: 20231111
  5. LENVIMA [Suspect]
     Active Substance: LENVATINIB
     Dates: start: 20231122

REACTIONS (1)
  - Pneumatosis intestinalis [Recovering/Resolving]

NARRATIVE: CASE EVENT DATE: 20231111
